FAERS Safety Report 20593696 (Version 1)
Quarter: 2022Q1

REPORT INFORMATION
  Report Type: Spontaneous
  Country: US (occurrence: US)
  Receive Date: 20220315
  Receipt Date: 20220315
  Transmission Date: 20220423
  Serious: Yes (Hospitalization, Other)
  Sender: FDA-Public Use
  Company Number: US-APOTEX-2022AP004340

PATIENT
  Age: 76 Year
  Sex: Male

DRUGS (5)
  1. ENOXAPARIN [Suspect]
     Active Substance: ENOXAPARIN
     Indication: Prophylaxis
     Dosage: 40 MILLIGRAM, BID (THERAPY OF DURATION 6.5 MONTHS)
     Route: 058
  2. ENOXAPARIN [Suspect]
     Active Substance: ENOXAPARIN
     Dosage: 40 MILLIGRAM, BID (THERAPY OF DURATION 3.5 MONTHS)
     Route: 058
  3. BIVALIRUDIN [Suspect]
     Active Substance: BIVALIRUDIN
     Indication: Anticoagulant therapy
     Dosage: UNK
     Route: 065
  4. HEPARIN [Suspect]
     Active Substance: HEPARIN SODIUM
     Indication: Pulmonary embolism
     Dosage: UNK (DOSE TITRATED TO THERAPEUTIC PTT)
     Route: 042
  5. HEPARIN [Suspect]
     Active Substance: HEPARIN SODIUM
     Dosage: UNK (DOSE TITRATED TO THERAPEUTIC PTT)
     Route: 042

REACTIONS (2)
  - Skin necrosis [Recovered/Resolved]
  - Haematuria [Unknown]
